FAERS Safety Report 16321637 (Version 1)
Quarter: 2019Q2

REPORT INFORMATION
  Report Type: Report from Study
  Country: GB (occurrence: GB)
  Receive Date: 20190516
  Receipt Date: 20190516
  Transmission Date: 20190711
  Serious: Yes (Other)
  Sender: FDA-Public Use
  Company Number: PHHY2019GB109552

PATIENT
  Sex: Female

DRUGS (1)
  1. HYRIMOZ [Suspect]
     Active Substance: ADALIMUMAB-ADAZ
     Indication: COLITIS ULCERATIVE
     Dosage: 0.8 ML, Q2W, PRE-FILLED PEN
     Route: 065
     Dates: start: 20190207

REACTIONS (4)
  - Cerebrovascular accident [Unknown]
  - Injection site bruising [Unknown]
  - Visual impairment [Unknown]
  - Injection site haemorrhage [Unknown]
